FAERS Safety Report 6398818-1 (Version None)
Quarter: 2009Q4

REPORT INFORMATION
  Report Type: 
  Country: None (occurrence: None)
  Receive Date: 20091013
  Receipt Date: 20091001
  Transmission Date: 20100525
  Serious: Yes (Other)
  Sender: FDA-Public Use
  Company Number: US-GILEAD-2009-0024426

PATIENT
  Sex: Female

DRUGS (2)
  1. TRUVADA [Suspect]
     Route: 048
     Dates: start: 20090303
  2. LOPINAVIR AND RITONAVIR [Concomitant]
     Dates: start: 20090303

REACTIONS (1)
  - VENTRICULAR SEPTAL DEFECT [None]
